FAERS Safety Report 9640293 (Version 2)
Quarter: 2013Q4

REPORT INFORMATION
  Report Type: Spontaneous
  Country: US (occurrence: US)
  Receive Date: 20131023
  Receipt Date: 20131203
  Transmission Date: 20140711
  Serious: No
  Sender: FDA-Public Use
  Company Number: US-009507513-1310USA007629

PATIENT
  Age: 60 Year
  Sex: Male
  Weight: 71.66 kg

DRUGS (4)
  1. VICTRELIS [Suspect]
     Indication: HEPATITIS C
     Dosage: 800 MG (4 CAPSULES), THREE TIMES A DAY (7-9 HOURS APART) WITH FOOD, START ON DAY 29 OF THERAPY)
     Route: 048
     Dates: start: 201309
  2. PEGASYS [Suspect]
     Indication: HEPATITIS C
     Dosage: 180MCG/0.5ML PFS
  3. RIBAPAK [Suspect]
     Indication: HEPATITIS C
     Dosage: 1000/DAY
     Route: 048
  4. TENORMIN [Concomitant]
     Route: 048

REACTIONS (13)
  - Myalgia [Unknown]
  - Pruritus generalised [Unknown]
  - Headache [Unknown]
  - Fatigue [Unknown]
  - Nausea [Unknown]
  - Dysgeusia [Unknown]
  - Asthenia [Unknown]
  - Confusional state [Unknown]
  - Red blood cell count decreased [Unknown]
  - White blood cell count decreased [Unknown]
  - Platelet count decreased [Unknown]
  - Nausea [Unknown]
  - Fatigue [Unknown]
